FAERS Safety Report 18578183 (Version 2)
Quarter: 2021Q1

REPORT INFORMATION
  Report Type: Spontaneous
  Country: AR (occurrence: AR)
  Receive Date: 20201204
  Receipt Date: 20210114
  Transmission Date: 20210419
  Serious: Yes (Hospitalization)
  Sender: FDA-Public Use
  Company Number: AR-AMGEN-ARGSP2020196843

PATIENT
  Age: 67 Year
  Sex: Female

DRUGS (1)
  1. ENBREL [Suspect]
     Active Substance: ETANERCEPT
     Indication: RHEUMATOID ARTHRITIS
     Dosage: 50 MG, WEEKLY
     Route: 065
     Dates: start: 20190801

REACTIONS (1)
  - Malaise [Unknown]

NARRATIVE: CASE EVENT DATE: 20201127
